FAERS Safety Report 9250924 (Version 2)
Quarter: 2013Q2

REPORT INFORMATION
  Report Type: Spontaneous
  Country: IE (occurrence: IE)
  Receive Date: 20130424
  Receipt Date: 20130429
  Transmission Date: 20140414
  Serious: Yes (Death)
  Sender: FDA-Public Use
  Company Number: PHHY2013IE039802

PATIENT
  Age: 84 Year
  Sex: Male

DRUGS (1)
  1. GLIVEC [Suspect]
     Dosage: UNK

REACTIONS (1)
  - Death [Fatal]
